FAERS Safety Report 5237311-6 (Version None)
Quarter: 2007Q1

REPORT INFORMATION
  Report Type: 
  Country: None (occurrence: None)
  Receive Date: 20070213
  Receipt Date: 20070205
  Transmission Date: 20070707
  Serious: Yes (Hospitalization)
  Sender: FDA-Public Use
  Company Number: HQWYE015227APR06

PATIENT
  Sex: Female
  Weight: 65 kg

DRUGS (21)
  1. RAPAMUNE [Suspect]
     Indication: PROPHYLAXIS AGAINST TRANSPLANT REJECTION
     Route: 048
     Dates: start: 20060303, end: 20060101
  2. RAPAMUNE [Suspect]
     Route: 048
     Dates: start: 20060101
  3. RAPAMUNE [Suspect]
     Route: 048
     Dates: start: 20061223
  4. PREDNISONE [Concomitant]
     Dosage: ^0^ MG DAILY
     Route: 048
     Dates: start: 20060308
  5. NORVASC [Concomitant]
     Route: 048
     Dates: start: 20060308
  6. METOPROLOL TARTRATE [Concomitant]
     Route: 048
     Dates: start: 20060324, end: 20060101
  7. METOPROLOL TARTRATE [Concomitant]
     Route: 048
     Dates: start: 20061128
  8. MINOXIDIL [Concomitant]
     Route: 048
     Dates: start: 20060324
  9. BACTRIM DS [Concomitant]
     Route: 048
     Dates: start: 20060308
  10. NYSTATIN [Concomitant]
     Route: 048
     Dates: start: 20060308
  11. VALGANCICLOVIR HCL [Concomitant]
     Route: 048
     Dates: start: 20060308
  12. HUMALOG [Concomitant]
     Dosage: SLIDING SCALE/DAILY
     Route: 048
     Dates: start: 20060308
  13. NOVOLIN 70/30 [Concomitant]
     Dosage: 25 UNIT EVERY 1 DAY
     Route: 058
     Dates: start: 20060308, end: 20060101
  14. NOVOLIN 70/30 [Concomitant]
     Dosage: 20 UNIT EVERY 1 DAY
     Route: 058
     Dates: start: 20061128
  15. COLACE [Concomitant]
     Route: 048
     Dates: start: 20060308
  16. IMDUR [Concomitant]
     Route: 048
     Dates: start: 20060308
  17. ASPIRIN [Concomitant]
     Route: 048
     Dates: start: 20060323
  18. CILOSTAZOL [Concomitant]
     Route: 048
     Dates: start: 20060308
  19. ARANESP [Concomitant]
     Route: 058
     Dates: start: 20060414
  20. DARVOCET-N 100 [Concomitant]
     Dosage: 100 MG EVERY 4 HOURS AS NEEDED
     Route: 048
     Dates: start: 20060308
  21. MYFORTIC [Suspect]
     Indication: PROPHYLAXIS AGAINST TRANSPLANT REJECTION
     Route: 048
     Dates: start: 20060304

REACTIONS (5)
  - DRY GANGRENE [None]
  - ENTEROCOCCAL INFECTION [None]
  - ESCHERICHIA INFECTION [None]
  - PSEUDOMONAS INFECTION [None]
  - WOUND INFECTION [None]
